FAERS Safety Report 6215152-0 (Version None)
Quarter: 2009Q2

REPORT INFORMATION
  Report Type: 
  Country: None (occurrence: None)
  Receive Date: 20090601
  Receipt Date: 20081031
  Transmission Date: 20091009
  Serious: Yes (Other)
  Sender: FDA-Public Use
  Company Number: 280957

PATIENT
  Age: 61 Year
  Sex: Female
  Weight: 81.6 kg

DRUGS (7)
  1. ACTIVELLA [Suspect]
     Indication: MENOPAUSE
     Dosage: 1G/0.5 MG, ORAL
     Route: 048
     Dates: start: 20010101, end: 20020101
  2. PREMPRO [Suspect]
     Indication: MENOPAUSE
     Dosage: 0.625/2.5 MG, ORAL
     Route: 048
     Dates: start: 19990101, end: 20010101
  3. PREMARIN [Suspect]
     Indication: VULVOVAGINAL PRURITUS
     Dosage: 0.01%, VAGINAL
     Route: 067
     Dates: start: 20010101, end: 20010101
  4. ORAL CONTRACEPTIVE NOS (ORAL CONTRACEPTIVE NOS) [Concomitant]
  5. TOPROL-XL [Concomitant]
  6. COUMADIN [Concomitant]
  7. COLCHICINE (COLCHICINE) [Concomitant]

REACTIONS (1)
  - BREAST CANCER [None]
